FAERS Safety Report 13270603 (Version 2)
Quarter: 2017Q2

REPORT INFORMATION
  Report Type: Not Available
  Country: US (occurrence: US)
  Receive Date: 20170224
  Receipt Date: 20170526
  Transmission Date: 20170830
  Serious: Yes (Other)
  Sender: FDA-Public Use
  Company Number: US-ANIPHARMA-2017-US-001960

PATIENT
  Age: 68 Year
  Sex: Male
  Weight: 86.18 kg

DRUGS (5)
  1. TRINTELLIX [Concomitant]
     Active Substance: VORTIOXETINE HYDROBROMIDE
  2. CLONAZEPAM. [Concomitant]
     Active Substance: CLONAZEPAM
  3. LAMOTRIGINE. [Concomitant]
     Active Substance: LAMOTRIGINE
  4. REGLAN [Suspect]
     Active Substance: METOCLOPRAMIDE HYDROCHLORIDE
     Route: 048
     Dates: start: 20090202
  5. METOPROLOL. [Concomitant]
     Active Substance: METOPROLOL

REACTIONS (12)
  - Parkinsonism [Unknown]
  - Feeling abnormal [Recovered/Resolved]
  - Loss of consciousness [Unknown]
  - Vomiting [Not Recovered/Not Resolved]
  - Akathisia [Unknown]
  - Hallucination [Recovered/Resolved]
  - Tardive dyskinesia [Unknown]
  - Altered state of consciousness [Unknown]
  - Tremor [Not Recovered/Not Resolved]
  - Dysphagia [Not Recovered/Not Resolved]
  - Dystonia [Unknown]
  - Pneumonia [Not Recovered/Not Resolved]

NARRATIVE: CASE EVENT DATE: 201010
